FAERS Safety Report 11614589 (Version 2)
Quarter: 2016Q3

REPORT INFORMATION
  Report Type: Spontaneous
  Country: US (occurrence: US)
  Receive Date: 20151009
  Receipt Date: 20160927
  Transmission Date: 20161109
  Serious: Yes (Other)
  Sender: FDA-Public Use
  Company Number: US-BEH-2015054407

PATIENT
  Age: 67 Year
  Sex: Female
  Weight: 51.71 kg

DRUGS (18)
  1. DIPHENHYDRAMINE. [Concomitant]
     Active Substance: DIPHENHYDRAMINE
  2. VITAMIN D [Concomitant]
     Active Substance: CHOLECALCIFEROL
  3. VITAMIN B [Concomitant]
     Active Substance: VITAMIN B
  4. ASPIRIN. [Concomitant]
     Active Substance: ASPIRIN
  5. LIDOCAINE. [Concomitant]
     Active Substance: LIDOCAINE
  6. MUCINEX [Concomitant]
     Active Substance: GUAIFENESIN
  7. SYNTHROID [Concomitant]
     Active Substance: LEVOTHYROXINE SODIUM
  8. ADVAIR HFA [Concomitant]
     Active Substance: FLUTICASONE PROPIONATE\SALMETEROL XINAFOATE
  9. HIZENTRA [Suspect]
     Active Substance: HUMAN IMMUNOGLOBULIN G
     Indication: PRODUCT USED FOR UNKNOWN INDICATION
     Route: 058
  10. IPRATROPIUM [Concomitant]
     Active Substance: IPRATROPIUM
  11. MULTIVITAMIN [Concomitant]
     Active Substance: VITAMINS
  12. SPIRIVA [Concomitant]
     Active Substance: TIOTROPIUM BROMIDE MONOHYDRATE
  13. OMEGA-KRILL OIL [Concomitant]
  14. CLONAZEPAM. [Concomitant]
     Active Substance: CLONAZEPAM
  15. ACETAMINOPHEN. [Concomitant]
     Active Substance: ACETAMINOPHEN
  16. CALTRATE [Concomitant]
     Active Substance: CALCIUM CARBONATE
  17. EPIPEN [Concomitant]
     Active Substance: EPINEPHRINE
     Indication: ANAPHYLACTIC REACTION
  18. PLAVIX [Concomitant]
     Active Substance: CLOPIDOGREL BISULFATE

REACTIONS (2)
  - Headache [Unknown]
  - Hospitalisation [Unknown]

NARRATIVE: CASE EVENT DATE: 20150904
